FAERS Safety Report 14279131 (Version 4)
Quarter: 2018Q1

REPORT INFORMATION
  Report Type: Report from Study
  Country: BR (occurrence: BR)
  Receive Date: 20171212
  Receipt Date: 20180117
  Transmission Date: 20180508
  Serious: Yes (Other)
  Sender: FDA-Public Use
  Company Number: PHHY2017BR182376

PATIENT
  Sex: Female
  Weight: 61 kg

DRUGS (8)
  1. TRAVATAN [Interacting]
     Active Substance: TRAVOPROST
     Indication: GLAUCOMA
     Dosage: 1 GTT, EACH EYE, BID (15 YEARS AGO)
     Route: 047
     Dates: start: 2007
  2. LUMIGAN [Suspect]
     Active Substance: BIMATOPROST
     Indication: GLAUCOMA
     Dosage: 1 GTT, EACH EYE, 3 YEARS AGO
     Route: 047
  3. AZORGA [Interacting]
     Active Substance: BRINZOLAMIDE\TIMOLOL MALEATE
     Indication: GLAUCOMA
     Dosage: 1 GTT, QN, EVERY 12 HOURS STARTED 7 YEARS AGO
     Route: 047
  4. GANFORT [Suspect]
     Active Substance: BIMATOPROST\TIMOLOL
     Indication: GLAUCOMA
     Dosage: (1 TIME A DAY) QD (STARTED 1 MONTH AGO)
     Route: 031
  5. CALCIUM [Concomitant]
     Active Substance: CALCIUM
     Indication: PROPHYLAXIS
     Dosage: 1 DF, QD (SINCE 30 YEARS AGO)
     Route: 048
  6. SIMBRINZA [Suspect]
     Active Substance: BRIMONIDINE TARTRATE\BRINZOLAMIDE
     Indication: GLAUCOMA
     Dosage: UNK UNK, BID (2 TIMES A DAY)
     Route: 031
  7. VITAMIN E [Concomitant]
     Active Substance: .ALPHA.-TOCOPHEROL
     Indication: BREAST MASS
     Dosage: 1 DF, QD (SINCE 5 YEARS AGO)
     Route: 048
  8. TIMOLOL. [Suspect]
     Active Substance: TIMOLOL
     Indication: GLAUCOMA
     Dosage: 1 GTT, EACH EYE, 25 YEARS AGO
     Route: 047

REACTIONS (7)
  - Arthritis [Unknown]
  - Intraocular pressure increased [Recovered/Resolved]
  - Eye pruritus [Not Recovered/Not Resolved]
  - Eye haemorrhage [Recovered/Resolved]
  - Visual impairment [Not Recovered/Not Resolved]
  - Asthenia [Recovered/Resolved]
  - Dry eye [Not Recovered/Not Resolved]

NARRATIVE: CASE EVENT DATE: 2015
